FAERS Safety Report 24952149 (Version 2)
Quarter: 2025Q1

REPORT INFORMATION
  Report Type: Spontaneous
  Country: FR (occurrence: FR)
  Receive Date: 20250210
  Receipt Date: 20250305
  Transmission Date: 20250409
  Serious: Yes (Other)
  Sender: MYLAN
  Company Number: None

PATIENT
  Age: 61 Year
  Sex: Male
  Weight: 78 kg

DRUGS (56)
  1. METHOTREXATE [Suspect]
     Active Substance: METHOTREXATE
     Indication: Lymphoma
     Dates: start: 20250109, end: 20250109
  2. METHOTREXATE [Suspect]
     Active Substance: METHOTREXATE
     Route: 042
     Dates: start: 20250109, end: 20250109
  3. METHOTREXATE [Suspect]
     Active Substance: METHOTREXATE
     Route: 042
     Dates: start: 20250109, end: 20250109
  4. METHOTREXATE [Suspect]
     Active Substance: METHOTREXATE
     Dates: start: 20250109, end: 20250109
  5. PROCARBAZINE [Suspect]
     Active Substance: PROCARBAZINE
     Indication: Lymphoma
     Dosage: 190 MILLIGRAM, QD
     Dates: start: 20250109, end: 20250113
  6. PROCARBAZINE [Suspect]
     Active Substance: PROCARBAZINE
     Dosage: 190 MILLIGRAM, QD
     Route: 048
     Dates: start: 20250109, end: 20250113
  7. PROCARBAZINE [Suspect]
     Active Substance: PROCARBAZINE
     Dosage: 190 MILLIGRAM, QD
     Route: 048
     Dates: start: 20250109, end: 20250113
  8. PROCARBAZINE [Suspect]
     Active Substance: PROCARBAZINE
     Dosage: 190 MILLIGRAM, QD
     Dates: start: 20250109, end: 20250113
  9. RITUXIMAB [Suspect]
     Active Substance: RITUXIMAB
     Indication: Lymphoma
     Dates: start: 20250109, end: 20250109
  10. RITUXIMAB [Suspect]
     Active Substance: RITUXIMAB
     Route: 042
     Dates: start: 20250109, end: 20250109
  11. RITUXIMAB [Suspect]
     Active Substance: RITUXIMAB
     Route: 042
     Dates: start: 20250109, end: 20250109
  12. RITUXIMAB [Suspect]
     Active Substance: RITUXIMAB
     Dates: start: 20250109, end: 20250109
  13. VINCRISTINE [Suspect]
     Active Substance: VINCRISTINE
     Indication: Lymphoma
     Dates: start: 20250109, end: 20250109
  14. VINCRISTINE [Suspect]
     Active Substance: VINCRISTINE
     Route: 042
     Dates: start: 20250109, end: 20250109
  15. VINCRISTINE [Suspect]
     Active Substance: VINCRISTINE
     Route: 042
     Dates: start: 20250109, end: 20250109
  16. VINCRISTINE [Suspect]
     Active Substance: VINCRISTINE
     Dates: start: 20250109, end: 20250109
  17. ALFUZOSIN HYDROCHLORIDE [Concomitant]
     Active Substance: ALFUZOSIN HYDROCHLORIDE
  18. ALFUZOSIN HYDROCHLORIDE [Concomitant]
     Active Substance: ALFUZOSIN HYDROCHLORIDE
     Route: 065
  19. ALFUZOSIN HYDROCHLORIDE [Concomitant]
     Active Substance: ALFUZOSIN HYDROCHLORIDE
     Route: 065
  20. ALFUZOSIN HYDROCHLORIDE [Concomitant]
     Active Substance: ALFUZOSIN HYDROCHLORIDE
  21. SODIUM ALGINATE [Concomitant]
     Active Substance: SODIUM ALGINATE
  22. SODIUM ALGINATE [Concomitant]
     Active Substance: SODIUM ALGINATE
     Route: 065
  23. SODIUM ALGINATE [Concomitant]
     Active Substance: SODIUM ALGINATE
     Route: 065
  24. SODIUM ALGINATE [Concomitant]
     Active Substance: SODIUM ALGINATE
  25. SODIUM BICARBONATE [Concomitant]
     Active Substance: SODIUM BICARBONATE
  26. SODIUM BICARBONATE [Concomitant]
     Active Substance: SODIUM BICARBONATE
     Route: 065
  27. SODIUM BICARBONATE [Concomitant]
     Active Substance: SODIUM BICARBONATE
     Route: 065
  28. SODIUM BICARBONATE [Concomitant]
     Active Substance: SODIUM BICARBONATE
  29. ALPRAZOLAM [Concomitant]
     Active Substance: ALPRAZOLAM
  30. ALPRAZOLAM [Concomitant]
     Active Substance: ALPRAZOLAM
     Route: 065
  31. ALPRAZOLAM [Concomitant]
     Active Substance: ALPRAZOLAM
     Route: 065
  32. ALPRAZOLAM [Concomitant]
     Active Substance: ALPRAZOLAM
  33. MONTMORILLONITE [Concomitant]
     Active Substance: MONTMORILLONITE
  34. MONTMORILLONITE [Concomitant]
     Active Substance: MONTMORILLONITE
     Route: 065
  35. MONTMORILLONITE [Concomitant]
     Active Substance: MONTMORILLONITE
     Route: 065
  36. MONTMORILLONITE [Concomitant]
     Active Substance: MONTMORILLONITE
  37. ZOPICLONE [Concomitant]
     Active Substance: ZOPICLONE
  38. ZOPICLONE [Concomitant]
     Active Substance: ZOPICLONE
     Route: 065
  39. ZOPICLONE [Concomitant]
     Active Substance: ZOPICLONE
     Route: 065
  40. ZOPICLONE [Concomitant]
     Active Substance: ZOPICLONE
  41. METOCLOPRAMIDE [Concomitant]
     Active Substance: METOCLOPRAMIDE
  42. METOCLOPRAMIDE [Concomitant]
     Active Substance: METOCLOPRAMIDE
     Route: 065
  43. METOCLOPRAMIDE [Concomitant]
     Active Substance: METOCLOPRAMIDE
     Route: 065
  44. METOCLOPRAMIDE [Concomitant]
     Active Substance: METOCLOPRAMIDE
  45. ONDANSETRON [Concomitant]
     Active Substance: ONDANSETRON
  46. ONDANSETRON [Concomitant]
     Active Substance: ONDANSETRON
     Route: 065
  47. ONDANSETRON [Concomitant]
     Active Substance: ONDANSETRON
     Route: 065
  48. ONDANSETRON [Concomitant]
     Active Substance: ONDANSETRON
  49. ENOXAPARIN SODIUM [Concomitant]
     Active Substance: ENOXAPARIN SODIUM
  50. ENOXAPARIN SODIUM [Concomitant]
     Active Substance: ENOXAPARIN SODIUM
     Route: 065
  51. ENOXAPARIN SODIUM [Concomitant]
     Active Substance: ENOXAPARIN SODIUM
     Route: 065
  52. ENOXAPARIN SODIUM [Concomitant]
     Active Substance: ENOXAPARIN SODIUM
  53. INSULIN GLARGINE [Concomitant]
     Active Substance: INSULIN GLARGINE
  54. INSULIN GLARGINE [Concomitant]
     Active Substance: INSULIN GLARGINE
     Route: 065
  55. INSULIN GLARGINE [Concomitant]
     Active Substance: INSULIN GLARGINE
     Route: 065
  56. INSULIN GLARGINE [Concomitant]
     Active Substance: INSULIN GLARGINE

REACTIONS (1)
  - Hepatic cytolysis [Recovered/Resolved]

NARRATIVE: CASE EVENT DATE: 20250113
